FAERS Safety Report 17202637 (Version 4)
Quarter: 2020Q3

REPORT INFORMATION
  Report Type: Spontaneous
  Country: CZ (occurrence: CZ)
  Receive Date: 20191226
  Receipt Date: 20200710
  Transmission Date: 20201102
  Serious: Yes (Other)
  Sender: FDA-Public Use
  Company Number: CZ-MYLANLABS-2019M1126234

PATIENT
  Age: 52 Year
  Sex: Female

DRUGS (3)
  1. ZOLEDRONIC ACID [Suspect]
     Active Substance: ZOLEDRONIC ACID
     Indication: BREAST CANCER
     Dosage: UNK
  2. BEVACIZUMAB. [Suspect]
     Active Substance: BEVACIZUMAB
     Indication: BREAST CANCER
     Dosage: UNK
  3. PACLITAXEL. [Suspect]
     Active Substance: PACLITAXEL
     Indication: BREAST CANCER
     Dosage: UNK

REACTIONS (7)
  - Metastases to bone [Unknown]
  - Malignant neoplasm progression [Unknown]
  - Drug ineffective [Unknown]
  - Drug intolerance [Unknown]
  - Breast cancer [Not Recovered/Not Resolved]
  - Bone marrow infiltration [Unknown]
  - Pain [Unknown]
